FAERS Safety Report 8515731-1 (Version None)
Quarter: 2012Q3

REPORT INFORMATION
  Report Type: 
  Country: None (occurrence: None)
  Receive Date: 20120717
  Receipt Date: 20120713
  Transmission Date: 20120928
  Serious: Yes (Death)
  Sender: FDA-Public Use
  Company Number: PHEH2012US013117

PATIENT
  Sex: Male

DRUGS (2)
  1. EXELON [Suspect]
     Route: 062
  2. EXELON [Suspect]
     Dosage: 2 DF, ONCE/SINGLE
     Route: 062

REACTIONS (2)
  - DEATH [None]
  - INCORRECT DOSE ADMINISTERED [None]
